FAERS Safety Report 9079854 (Version 1)
Quarter: 2013Q1

REPORT INFORMATION
  Report Type: Spontaneous
  Country: IT (occurrence: IT)
  Receive Date: 20130215
  Receipt Date: 20130215
  Transmission Date: 20140127
  Serious: Yes (Hospitalization)
  Sender: FDA-Public Use
  Company Number: IT-GLAXOSMITHKLINE-B0868112A

PATIENT
  Age: 65 Year
  Sex: Male

DRUGS (1)
  1. ARIXTRA [Suspect]
     Indication: PERIPHERAL ARTERY THROMBOSIS
     Dosage: 2.5MG PER DAY
     Route: 058
     Dates: start: 20120701, end: 20121201

REACTIONS (4)
  - Cerebral haemorrhage [Recovered/Resolved with Sequelae]
  - Hemiplegia [Recovered/Resolved with Sequelae]
  - Visual impairment [Recovered/Resolved with Sequelae]
  - Movement disorder [Recovered/Resolved with Sequelae]
